FAERS Safety Report 9358397 (Version 1)
Quarter: 2013Q2

REPORT INFORMATION
  Report Type: Spontaneous
  Country: KR (occurrence: KR)
  Receive Date: 20130620
  Receipt Date: 20130620
  Transmission Date: 20140414
  Serious: Yes (Life-Threatening, Hospitalization)
  Sender: FDA-Public Use
  Company Number: KR-B.I. PHARMACEUTICALS,INC./RIDGEFIELD-2013-BI-17356RK

PATIENT
  Age: 70 Year
  Sex: Female
  Weight: 57 kg

DRUGS (4)
  1. PRADAXA [Suspect]
     Indication: ANTICOAGULANT THERAPY
     Dosage: 300 MG
     Route: 048
     Dates: start: 20130515
  2. KEPPRA [Concomitant]
     Indication: CONVULSION
     Dosage: 1000 MG
     Route: 048
     Dates: start: 20110404
  3. SEVIKAR [Concomitant]
     Indication: BLOOD PRESSURE ABNORMAL
     Route: 048
     Dates: start: 20110511
  4. CRESTOR [Concomitant]
     Indication: ATHEROSCLEROSIS PROPHYLAXIS
     Dosage: 20 MG
     Route: 048
     Dates: start: 20080908

REACTIONS (1)
  - Cerebral infarction [Not Recovered/Not Resolved]
